FAERS Safety Report 15356126 (Version 1)
Quarter: 2018Q3

REPORT INFORMATION
  Report Type: Spontaneous
  Country: GB (occurrence: GB)
  Receive Date: 20180906
  Receipt Date: 20180906
  Transmission Date: 20181010
  Serious: Yes (Other)
  Sender: FDA-Public Use
  Company Number: GB-PFIZER INC-2018357644

PATIENT
  Age: 64 Year
  Sex: Female

DRUGS (6)
  1. METHOTREXATE. [Concomitant]
     Active Substance: METHOTREXATE
     Dosage: 8 DF, (20MG) TO BE TAKEN WEEKLY
     Dates: start: 20180803
  2. PREDNISOLONE. [Concomitant]
     Active Substance: PREDNISOLONE
     Dosage: TO BE TAKEN AS PRESCRIBED BY YOUR GP / CONSULTANT
     Dates: start: 20180629
  3. SULFASALAZINE. [Suspect]
     Active Substance: SULFASALAZINE
     Dosage: 2 DF, 2X/DAY (ONE DAILY IN THE MORNING AND INCREASE AS PERRHEUMATOLOGY TO TWO TABLETS TWICE DAILY))
  4. SULFASALAZINE. [Suspect]
     Active Substance: SULFASALAZINE
     Dosage: 500 MG, 1X/DAY (ONE DAILY IN THE MORNING AND INCREASE AS PERRHEUMATOLOGY TO TWO TABLETS TWICE DAILY)
     Dates: start: 20180806
  5. FOLIC ACID. [Concomitant]
     Active Substance: FOLIC ACID
     Dosage: 1 DF, 1X/DAY (NOT ON METHOTREXATE DAYS)
     Dates: start: 20180803
  6. OMEPRAZOLE. [Concomitant]
     Active Substance: OMEPRAZOLE
     Indication: DYSPEPSIA
     Dosage: 1 DF, 1X/DAY
     Dates: start: 20180508

REACTIONS (3)
  - Swelling face [Recovering/Resolving]
  - Malaise [Unknown]
  - Alanine aminotransferase increased [Unknown]

NARRATIVE: CASE EVENT DATE: 20180808
